FAERS Safety Report 4470645-1 (Version None)
Quarter: 2004Q4

REPORT INFORMATION
  Report Type: 
  Country: None (occurrence: None)
  Receive Date: 20041005
  Receipt Date: 20040913
  Transmission Date: 20050328
  Serious: Yes (Life-Threatening, Other)
  Sender: FDA-Public Use
  Company Number: JP_040904586

PATIENT
  Age: 64 Year
  Sex: Female
  Weight: 57 kg

DRUGS (4)
  1. VINBLASTINE SULFATE [Suspect]
     Indication: MALIGNANT NEOPLASM OF RENAL PELVIS
     Dosage: 4 MG/1 OTHER
     Route: 050
     Dates: start: 20040927, end: 20040927
  2. RANDA (CISPLATIN PHARMACIA) [Concomitant]
  3. METHOTREXATE [Concomitant]
  4. PINORUBIN (PIRARUBICIN) [Concomitant]

REACTIONS (8)
  - ARRHYTHMIA [None]
  - BLOOD ANTIDIURETIC HORMONE INCREASED [None]
  - CONVULSION [None]
  - HYPONATRAEMIA [None]
  - LOSS OF CONSCIOUSNESS [None]
  - NEUTROPHIL PERCENTAGE DECREASED [None]
  - NEUTROPHIL PERCENTAGE INCREASED [None]
  - WHITE BLOOD CELL COUNT DECREASED [None]
